FAERS Safety Report 25370159 (Version 3)
Quarter: 2025Q2

REPORT INFORMATION
  Report Type: Report from Study
  Country: US (occurrence: US)
  Receive Date: 20250528
  Receipt Date: 20250625
  Transmission Date: 20250717
  Serious: No
  Sender: MALLINCKRODT
  Company Number: US-MALLINCKRODT-MNK202503222

PATIENT
  Age: 76 Year
  Sex: Female
  Weight: 161 kg

DRUGS (2)
  1. CORTICOTROPIN [Suspect]
     Active Substance: CORTICOTROPIN
     Indication: Pulmonary sarcoidosis
     Dates: start: 20250522
  2. ALBUTEROL SULFATE [Suspect]
     Active Substance: ALBUTEROL SULFATE
     Indication: Product used for unknown indication

REACTIONS (9)
  - Feeling jittery [Unknown]
  - Increased tendency to bruise [Unknown]
  - Tremor [Recovered/Resolved]
  - Memory impairment [Unknown]
  - Somnolence [Unknown]
  - Swollen tongue [Unknown]
  - Blood pressure abnormal [Unknown]
  - Injection site bruising [Unknown]
  - Gastroenteritis viral [Unknown]

NARRATIVE: CASE EVENT DATE: 20250101
